FAERS Safety Report 10191414 (Version 1)
Quarter: 2014Q2

REPORT INFORMATION
  Report Type: Spontaneous
  Country: US (occurrence: US)
  Receive Date: 20140523
  Receipt Date: 20140523
  Transmission Date: 20141212
  Serious: No
  Sender: FDA-Public Use
  Company Number: US-PFIZER INC-2014139451

PATIENT
  Age: 8 Year
  Sex: Female

DRUGS (2)
  1. GENOTROPIN MQ [Suspect]
     Dosage: 1.4 MG, UNK
     Dates: start: 201202
  2. GENOTROPIN MQ [Suspect]
     Dosage: 1.6 MG, UNK

REACTIONS (2)
  - Intentional product misuse [Unknown]
  - Insulin-like growth factor decreased [Unknown]
